FAERS Safety Report 6786653-1 (Version None)
Quarter: 2010Q2

REPORT INFORMATION
  Report Type: 
  Country: None (occurrence: None)
  Receive Date: 20100623
  Receipt Date: 20100614
  Transmission Date: 20101027
  Serious: Yes (Other)
  Sender: FDA-Public Use
  Company Number: SE-PFIZER INC-2009297391

PATIENT
  Age: 58 Year
  Sex: Male
  Weight: 96 kg

DRUGS (1)
  1. LIPITOR [Suspect]
     Indication: BLOOD CHOLESTEROL INCREASED
     Dosage: 40 MG, UNK
     Dates: end: 20100325

REACTIONS (3)
  - NEURODERMATITIS [None]
  - RASH MACULAR [None]
  - SCAR [None]
